FAERS Safety Report 12416554 (Version 1)
Quarter: 2016Q2

REPORT INFORMATION
  Report Type: Spontaneous
  Country: FR (occurrence: FR)
  Receive Date: 20160530
  Receipt Date: 20160530
  Transmission Date: 20160815
  Serious: Yes (Other)
  Sender: FDA-Public Use
  Company Number: FR-JNJFOC-20150300951

PATIENT
  Age: 71 Year
  Sex: Female

DRUGS (1)
  1. IXPRIM [Suspect]
     Active Substance: ACETAMINOPHEN\TRAMADOL HYDROCHLORIDE
     Indication: TENDONITIS
     Route: 048
     Dates: start: 20150114

REACTIONS (4)
  - Constipation [Unknown]
  - Urine output decreased [Unknown]
  - Dysuria [Unknown]
  - Sudden onset of sleep [Unknown]

NARRATIVE: CASE EVENT DATE: 201501
